FAERS Safety Report 5908759-9 (Version None)
Quarter: 2008Q4

REPORT INFORMATION
  Report Type: 
  Country: None (occurrence: None)
  Receive Date: 20081006
  Receipt Date: 20081001
  Transmission Date: 20090506
  Serious: Yes (Hospitalization)
  Sender: FDA-Public Use
  Company Number: DE-BRISTOL-MYERS SQUIBB COMPANY-14328454

PATIENT
  Age: 60 Year
  Sex: Female

DRUGS (2)
  1. ABILIFY [Suspect]
     Indication: SCHIZOPHRENIA, PARANOID TYPE
     Dosage: DRUG INTERRUPTED ON OCT07,REDUCED TO 10MG,AND ADMINISTERED AT 15MG DOSE SINCE THE END OF APR-2008
     Route: 048
     Dates: start: 20070901
  2. SEROQUEL [Suspect]
     Indication: SCHIZOPHRENIA, PARANOID TYPE
     Dosage: FORM=TABLETS;DRUG INTERRUPTED IN OCT07.REDUCED TO 200MG;ADMINISTRATED AT 600MG SINCE END OF APR2008.
     Route: 048
     Dates: start: 20070901

REACTIONS (7)
  - DEPRESSED LEVEL OF CONSCIOUSNESS [None]
  - DISORIENTATION [None]
  - HYPERHIDROSIS [None]
  - HYPERTENSION [None]
  - HYPERTONIA [None]
  - TACHYCARDIA [None]
  - TREMOR [None]
